FAERS Safety Report 11477226 (Version 2)
Quarter: 2024Q4

REPORT INFORMATION
  Report Type: Report from Study
  Country: US (occurrence: US)
  Receive Date: 20150909
  Receipt Date: 20241022
  Transmission Date: 20250115
  Serious: Yes (Other)
  Sender: JAZZ
  Company Number: US-JAZZ-2015-US-008256

PATIENT
  Sex: Female

DRUGS (4)
  1. XYREM [Suspect]
     Active Substance: SODIUM OXYBATE
     Indication: Hypersomnia
     Dosage: DOSE ADJUSTMENT
     Route: 048
  2. PROGESTERONE [Concomitant]
     Active Substance: PROGESTERONE
     Indication: Product used for unknown indication
     Dosage: UNK
     Dates: start: 20141006
  3. THYROGLOBULIN [Concomitant]
     Active Substance: THYROGLOBULIN
     Indication: Product used for unknown indication
     Dosage: UNK
  4. XANAX [Concomitant]
     Active Substance: ALPRAZOLAM
     Indication: Product used for unknown indication

REACTIONS (17)
  - Epstein-Barr viraemia [Unknown]
  - Autoimmune disorder [Unknown]
  - Cytomegalovirus infection [Unknown]
  - Immunodeficiency [Unknown]
  - Immunoglobulin G4 related disease [Unknown]
  - Hypogammaglobulinaemia [Unknown]
  - Weight decreased [Unknown]
  - Oral herpes [Unknown]
  - Human herpesvirus 6 infection [Unknown]
  - Respiratory disorder [Unknown]
  - Wrist fracture [Recovering/Resolving]
  - Fibromyalgia [Unknown]
  - Arthritis [Unknown]
  - Carpal tunnel syndrome [Unknown]
  - Adjustment disorder with depressed mood [Unknown]
  - Product administration interrupted [Unknown]
  - Off label use [Unknown]
